FAERS Safety Report 6785738-3 (Version None)
Quarter: 2010Q2

REPORT INFORMATION
  Report Type: 
  Country: None (occurrence: None)
  Receive Date: 20100622
  Receipt Date: 20100622
  Transmission Date: 20101027
  Serious: Yes (Hospitalization)
  Sender: FDA-Public Use
  Company Number: None

PATIENT
  Age: 48 Year
  Sex: Female
  Weight: 90.7194 kg

DRUGS (4)
  1. CVS IBUPROFEN LIQUID GEL CAPS 200 MG BANNER PHARMACAPS/PL [Suspect]
     Indication: PAIN
     Dosage: 400 MG ONCE PO
     Route: 048
     Dates: start: 20100519, end: 20100519
  2. CVS IBUPROFEN LIQUID GEL CAPS 200 MG BANNER PHARMACAPS/PL [Suspect]
     Indication: SELF-MEDICATION
     Dosage: 400 MG ONCE PO
     Route: 048
     Dates: start: 20100519, end: 20100519
  3. CVS IBUPROFEN LIQUID GEL CAPS 200 MG BANNER PHARMACAPS/PL [Suspect]
     Indication: PAIN
     Dosage: 400 MG ONCE PO
     Route: 048
     Dates: start: 20100527, end: 20100527
  4. CVS IBUPROFEN LIQUID GEL CAPS 200 MG BANNER PHARMACAPS/PL [Suspect]
     Indication: SELF-MEDICATION
     Dosage: 400 MG ONCE PO
     Route: 048
     Dates: start: 20100527, end: 20100527

REACTIONS (3)
  - LIP SWELLING [None]
  - SWOLLEN TONGUE [None]
  - UNEVALUABLE EVENT [None]
